FAERS Safety Report 16235822 (Version 1)
Quarter: 2019Q2

REPORT INFORMATION
  Report Type: Report from Study
  Country: GB (occurrence: GB)
  Receive Date: 20190424
  Receipt Date: 20190424
  Transmission Date: 20190711
  Serious: Yes (Death)
  Sender: FDA-Public Use
  Company Number: PHHY2019GB093975

PATIENT
  Age: 79 Year
  Sex: Female

DRUGS (1)
  1. MEKINIST [Suspect]
     Active Substance: TRAMETINIB DIMETHYL SULFOXIDE
     Indication: PRODUCT USED FOR UNKNOWN INDICATION
     Dosage: 2 MG, QD (STOPPED ON 10 APR 2019)
     Route: 048
     Dates: start: 20180608

REACTIONS (1)
  - Death [Fatal]

NARRATIVE: CASE EVENT DATE: 20190410
